APPROVED DRUG PRODUCT: CLOPIDOGREL BISULFATE
Active Ingredient: CLOPIDOGREL BISULFATE
Strength: EQ 75MG BASE
Dosage Form/Route: TABLET;ORAL
Application: A091023 | Product #002 | TE Code: AB
Applicant: DR REDDYS LABORATORIES LTD
Approved: Aug 5, 2024 | RLD: No | RS: No | Type: RX